FAERS Safety Report 6201384-4 (Version None)
Quarter: 2009Q2

REPORT INFORMATION
  Report Type: 
  Country: None (occurrence: None)
  Receive Date: 20090526
  Receipt Date: 20090520
  Transmission Date: 20091009
  Serious: Yes (Life-Threatening, Hospitalization, Other)
  Sender: FDA-Public Use
  Company Number: PHHY2009MX17579

PATIENT
  Age: 91 Year
  Sex: Male

DRUGS (1)
  1. DIOVAN [Suspect]
     Indication: HYPERTENSION
     Dosage: 80 MG, QD
     Route: 048
     Dates: start: 20060201, end: 20090301

REACTIONS (8)
  - CARDIAC DISORDER [None]
  - CYANOSIS [None]
  - GAIT DISTURBANCE [None]
  - HEART RATE DECREASED [None]
  - HYPOTENSION [None]
  - HYPOTHYROIDISM [None]
  - SYNCOPE [None]
  - TERMINAL STATE [None]
